FAERS Safety Report 21295179 (Version 2)
Quarter: 2023Q1

REPORT INFORMATION
  Report Type: Spontaneous
  Country: CA (occurrence: CA)
  Receive Date: 20220905
  Receipt Date: 20230209
  Transmission Date: 20230418
  Serious: Yes (Other)
  Sender: FDA-Public Use
  Company Number: CA-ANIPHARMA-2022-CA-001766

PATIENT
  Age: 62 Year
  Sex: Female
  Weight: 72.58 kg

DRUGS (3)
  1. CANDESARTAN CILEXETIL [Suspect]
     Active Substance: CANDESARTAN CILEXETIL
     Indication: Hypertension
     Dosage: 16 MG DAILY / 16 MG DAILY
     Route: 048
     Dates: start: 20210101, end: 20210107
  2. ESOMEPRAZOLE [Suspect]
     Active Substance: ESOMEPRAZOLE
     Dosage: 40 MG DAILY
     Route: 048
     Dates: start: 20210101, end: 20210104
  3. NIFEDIPINE [Suspect]
     Active Substance: NIFEDIPINE
     Route: 048
     Dates: start: 20210101, end: 20210104

REACTIONS (6)
  - Anxiety [Recovered/Resolved]
  - Feeling abnormal [Recovered/Resolved]
  - Insomnia [Recovered/Resolved]
  - Product substitution issue [Recovered/Resolved]
  - Sleep terror [Recovered/Resolved]
  - Tremor [Recovered/Resolved]

NARRATIVE: CASE EVENT DATE: 20210101
